FAERS Safety Report 8204730-5 (Version None)
Quarter: 2012Q1

REPORT INFORMATION
  Report Type: 
  Country: None (occurrence: None)
  Receive Date: 20120313
  Receipt Date: 20120306
  Transmission Date: 20120608
  Serious: Yes (Death, Life-Threatening, Other)
  Sender: FDA-Public Use
  Company Number: JP-CELGENEUS-087-50794-12031077

PATIENT
  Sex: Female
  Weight: 46 kg

DRUGS (10)
  1. VIDAZA [Suspect]
     Dosage: 75 MILLIGRAM/SQ. METER
     Route: 058
     Dates: start: 20110620, end: 20110626
  2. MEROPENEM [Concomitant]
     Route: 065
     Dates: start: 20110802, end: 20110814
  3. ALBUMIN (HUMAN) [Concomitant]
     Route: 065
     Dates: start: 20110830, end: 20110901
  4. VFEND [Concomitant]
     Route: 065
     Dates: start: 20110725, end: 20110908
  5. ALBUMIN (HUMAN) [Concomitant]
     Route: 065
     Dates: start: 20110808, end: 20110810
  6. ZOSYN [Concomitant]
     Route: 065
     Dates: start: 20110714, end: 20110728
  7. ARMODAFINIL [Concomitant]
     Route: 065
     Dates: end: 20110725
  8. GENINAX [Concomitant]
     Route: 065
     Dates: start: 20110620, end: 20110724
  9. OMEGACIN [Concomitant]
     Route: 065
     Dates: start: 20110815, end: 20110828
  10. KAKODIN [Concomitant]
     Route: 065
     Dates: start: 20110908, end: 20110909

REACTIONS (4)
  - SEPSIS [None]
  - PNEUMONIA [None]
  - ILEUS [None]
  - OEDEMA [None]
